FAERS Safety Report 9665246 (Version 1)
Quarter: 2013Q4

REPORT INFORMATION
  Report Type: Spontaneous
  Country: MX (occurrence: MX)
  Receive Date: 20131101
  Receipt Date: 20131101
  Transmission Date: 20140711
  Serious: Yes (Other)
  Sender: FDA-Public Use
  Company Number: MX-ABBVIE-13P-107-1165388-00

PATIENT
  Age: 35 Year
  Sex: Female
  Weight: 48 kg

DRUGS (3)
  1. LUPRON DEPOT [Suspect]
     Indication: OLIGOMENORRHOEA
     Dates: start: 20130830, end: 20130921
  2. LUPRON DEPOT [Suspect]
     Indication: DYSMENORRHOEA
  3. LUPRON DEPOT [Suspect]
     Indication: MENORRHAGIA

REACTIONS (11)
  - Menstruation irregular [Recovered/Resolved]
  - Amenorrhoea [Recovered/Resolved]
  - Nausea [Recovered/Resolved]
  - Vomiting [Recovered/Resolved]
  - Insomnia [Recovered/Resolved]
  - Hot flush [Recovered/Resolved]
  - Decreased appetite [Recovered/Resolved]
  - Headache [Recovered/Resolved]
  - Dizziness [Recovered/Resolved]
  - Thirst [Recovered/Resolved]
  - Weight decreased [Recovered/Resolved]
